FAERS Safety Report 15122500 (Version 2)
Quarter: 2018Q3

REPORT INFORMATION
  Report Type: Spontaneous
  Country: AT (occurrence: AT)
  Receive Date: 20180709
  Receipt Date: 20180709
  Transmission Date: 20181010
  Serious: Yes (Other)
  Sender: FDA-Public Use
  Company Number: PHHY2018AT031792

PATIENT
  Sex: Female
  Weight: 64 kg

DRUGS (2)
  1. PREDNISOLONE. [Suspect]
     Active Substance: PREDNISOLONE
     Dosage: 25 MG, UNK
     Route: 065
  2. PREDNISOLONE. [Suspect]
     Active Substance: PREDNISOLONE
     Indication: PRODUCT USED FOR UNKNOWN INDICATION
     Dosage: 5 MG, UNK (AFTER SOME WEEKS 5MG/D)
     Route: 065

REACTIONS (5)
  - Myocardial fibrosis [Unknown]
  - Cardiac failure [Unknown]
  - Bundle branch block right [Unknown]
  - Sinus tachycardia [Unknown]
  - Systolic dysfunction [Unknown]
